FAERS Safety Report 5206282-0 (Version None)
Quarter: 2006Q4

REPORT INFORMATION
  Report Type: 
  Country: None (occurrence: None)
  Receive Date: 20061031
  Receipt Date: 20060905
  Transmission Date: 20070319
  Serious: No
  Sender: FDA-Public Use
  Company Number: 2006-BP-10523BP

PATIENT

DRUGS (1)
  1. APTIVUS/RITONAVIR CAPSULES (ALL OTHER THERAPEUTIC PRODUCTS) [Suspect]
     Indication: HIV INFECTION
     Dosage: SEE TEXT, APTIVA/RITONAVIR 250/100MG, CAPSULE

REACTIONS (1)
  - HEADACHE [None]
